FAERS Safety Report 7435562-3 (Version None)
Quarter: 2011Q2

REPORT INFORMATION
  Report Type: 
  Country: None (occurrence: None)
  Receive Date: 20110425
  Receipt Date: 20110419
  Transmission Date: 20111010
  Serious: No
  Sender: FDA-Public Use
  Company Number: US-PFIZER INC-2011086004

PATIENT
  Sex: Female
  Weight: 48.073 kg

DRUGS (2)
  1. PRISTIQ [Suspect]
     Indication: DEPRESSION
     Dosage: 50 MG, DAILY
     Route: 048
     Dates: start: 20110414
  2. GEODON [Concomitant]
     Dosage: UNK

REACTIONS (5)
  - ILL-DEFINED DISORDER [None]
  - DIZZINESS [None]
  - HOT FLUSH [None]
  - DRY SKIN [None]
  - PUPILLARY DISORDER [None]
